FAERS Safety Report 14638223 (Version 3)
Quarter: 2018Q2

REPORT INFORMATION
  Report Type: Spontaneous
  Country: NL (occurrence: NL)
  Receive Date: 20180314
  Receipt Date: 20180426
  Transmission Date: 20180711
  Serious: Yes (Death, Hospitalization, Disabling, Other)
  Sender: FDA-Public Use
  Company Number: NL-PFIZER INC-2018101657

PATIENT
  Sex: Male

DRUGS (5)
  1. OXYCONTIN [Concomitant]
     Active Substance: OXYCODONE HYDROCHLORIDE
     Indication: PAIN
     Dosage: UNK
  2. OXALIPLATIN. [Suspect]
     Active Substance: OXALIPLATIN
     Indication: COLON CANCER
     Dosage: 85 MG/M2, DAILY
     Route: 042
     Dates: start: 20151109, end: 20160101
  3. FOLINIC ACID [Suspect]
     Active Substance: LEUCOVORIN
     Indication: COLON CANCER
     Dosage: 200 MG/M2, DAILY
     Route: 042
     Dates: start: 20151109, end: 20160621
  4. 5-FLUOROURACIL [Suspect]
     Active Substance: FLUOROURACIL
     Indication: COLON CANCER
     Dosage: 600 MG/M2, DAILY
     Route: 042
     Dates: start: 20151109, end: 20160621
  5. OXYCODON [Concomitant]
     Active Substance: OXYCODONE
     Indication: PAIN
     Dosage: UNK

REACTIONS (14)
  - Dyspepsia [Recovered/Resolved]
  - Nausea [Recovered/Resolved]
  - Sensation of foreign body [Recovered/Resolved]
  - Neuropathy peripheral [Recovered/Resolved]
  - Vomiting [Recovered/Resolved]
  - Paraesthesia oral [Recovered/Resolved]
  - Platelet disorder [Unknown]
  - Paraesthesia [Recovered/Resolved]
  - Mobility decreased [Recovered/Resolved]
  - Asthenia [Recovered/Resolved]
  - Neoplasm progression [Fatal]
  - Malaise [Recovered/Resolved]
  - White blood cell disorder [Unknown]
  - Dysphagia [Recovered/Resolved]

NARRATIVE: CASE EVENT DATE: 2015
